FAERS Safety Report 9924835 (Version 1)
Quarter: 2014Q1

REPORT INFORMATION
  Report Type: Spontaneous
  Country: US (occurrence: None)
  Receive Date: 20140221
  Receipt Date: 20140221
  Transmission Date: 20141002
  Serious: Yes (Other)
  Sender: FDA-Public Use
  Company Number: 1402-0350

PATIENT
  Age: 78 Year
  Sex: Female

DRUGS (8)
  1. EYLEA [Suspect]
     Indication: AGE-RELATED MACULAR DEGENERATION
     Dates: start: 201308
  2. LASIX (FUROSEMIDE) [Concomitant]
  3. PRAVASTATIN (PRAVASTATIN) [Concomitant]
  4. AMLODIPINE (AMLODIPINE) [Concomitant]
  5. HYDROCHLOROTHIAZIDE (HYDROCHLOROTHIAZIDE) [Concomitant]
  6. OMEPRAZOLE (OMEPRAZOLE) [Concomitant]
  7. VENLAFAXINE (VENLAFAXINE) [Concomitant]
  8. PLAVIX (CLOPIDOGREL BISULFATE) (CLOPIDOGREL BISULFATE) [Concomitant]

REACTIONS (1)
  - Scleritis [None]
